FAERS Safety Report 19117075 (Version 2)
Quarter: 2021Q2

REPORT INFORMATION
  Report Type: Spontaneous
  Country: US (occurrence: US)
  Receive Date: 20210409
  Receipt Date: 20210415
  Transmission Date: 20210717
  Serious: Yes (Hospitalization, Other)
  Sender: FDA-Public Use
  Company Number: NVSC2021US078121

PATIENT

DRUGS (1)
  1. LUTATHERA [Suspect]
     Active Substance: LUTETIUM OXODOTREOTIDE LU-177
     Indication: PRODUCT USED FOR UNKNOWN INDICATION
     Dosage: RECEIVED 1 INJECTION DOSE
     Route: 065

REACTIONS (4)
  - Hernia [Unknown]
  - Ill-defined disorder [Unknown]
  - Intestinal obstruction [Unknown]
  - Cardiac disorder [Unknown]
